FAERS Safety Report 5178852-X (Version None)
Quarter: 2006Q4

REPORT INFORMATION
  Report Type: 
  Country: None (occurrence: None)
  Receive Date: 20061208
  Receipt Date: 20061204
  Transmission Date: 20070319
  Serious: Yes (Hospitalization)
  Sender: FDA-Public Use
  Company Number: 2006148794

PATIENT
  Sex: Male

DRUGS (2)
  1. LIPITOR [Suspect]
  2. ANTIINFECTIVES (ANTIINFECTIVES) [Suspect]

REACTIONS (2)
  - DRUG INTERACTION [None]
  - MYALGIA [None]
